FAERS Safety Report 4796569-8 (Version None)
Quarter: 2005Q4

REPORT INFORMATION
  Report Type: 
  Country: None (occurrence: None)
  Receive Date: 20051013
  Receipt Date: 20050916
  Transmission Date: 20060501
  Serious: Yes (Hospitalization)
  Sender: FDA-Public Use
  Company Number: HQWYE509716SEP05

PATIENT
  Sex: Female

DRUGS (9)
  1. ENBREL [Suspect]
     Indication: RHEUMATOID ARTHRITIS
     Route: 058
     Dates: start: 20050705, end: 20050802
  2. METHOTREXATE [Concomitant]
  3. METHYLPREDNISOLONE [Concomitant]
  4. ACTONEL [Concomitant]
  5. INDOMETHACIN [Concomitant]
  6. FOLIC ACID [Concomitant]
  7. AMILORIDE HYDROCHLORIDE/HYDROCHLOROTHIAZIDE [Concomitant]
  8. MELOXICAM [Concomitant]
  9. ALLOPURINOL [Concomitant]

REACTIONS (5)
  - CONDITION AGGRAVATED [None]
  - INTERVERTEBRAL DISCITIS [None]
  - PYELONEPHRITIS [None]
  - RHEUMATOID ARTHRITIS [None]
  - SEPSIS [None]
